FAERS Safety Report 4435458-5 (Version None)
Quarter: 2004Q3

REPORT INFORMATION
  Report Type: 
  Country: None (occurrence: None)
  Receive Date: 20040826
  Receipt Date: 20040810
  Transmission Date: 20050211
  Serious: Yes (Disabling)
  Sender: FDA-Public Use
  Company Number: 2004GB01738

PATIENT
  Age: 77 Year
  Sex: Male
  Weight: 48 kg

DRUGS (3)
  1. GEFITINIB [Suspect]
     Indication: NON-SMALL CELL LUNG CANCER
     Dosage: 250 MG QD PO
     Route: 048
     Dates: start: 20040426, end: 20040618
  2. ALBUTEROL SULFATE [Concomitant]
  3. COPROXAMOL [Concomitant]

REACTIONS (4)
  - IMPAIRED SELF-CARE [None]
  - LETHARGY [None]
  - PERFORMANCE STATUS DECREASED [None]
  - RASH [None]
